FAERS Safety Report 7086136-8 (Version None)
Quarter: 2010Q4

REPORT INFORMATION
  Report Type: 
  Country: None (occurrence: None)
  Receive Date: 20101105
  Receipt Date: 20101028
  Transmission Date: 20110411
  Serious: Yes (Life-Threatening, Other)
  Sender: FDA-Public Use
  Company Number: B0683006A

PATIENT
  Sex: Female

DRUGS (2)
  1. KIVEXA [Suspect]
     Indication: HIV INFECTION
     Route: 048
     Dates: start: 20101005, end: 20101005
  2. EFAVIRENZ [Concomitant]
     Indication: HIV INFECTION
     Dosage: 600MG PER DAY
     Dates: start: 20101004, end: 20101004

REACTIONS (4)
  - CONDITION AGGRAVATED [None]
  - GENERALISED OEDEMA [None]
  - PRURITUS [None]
  - RASH [None]
